FAERS Safety Report 23699635 (Version 1)
Quarter: 2024Q2

REPORT INFORMATION
  Report Type: Report from Study
  Country: US (occurrence: US)
  Receive Date: 20240403
  Receipt Date: 20240403
  Transmission Date: 20240716
  Serious: Yes (Hospitalization, Other)
  Sender: FDA-Public Use
  Company Number: US-ABBVIE-5701419

PATIENT
  Age: 42 Year
  Sex: Female

DRUGS (2)
  1. SKYRIZI [Suspect]
     Active Substance: RISANKIZUMAB-RZAA
     Indication: Product used for unknown indication
     Route: 058
  2. PHENTERMINE [Suspect]
     Active Substance: PHENTERMINE
     Indication: Product used for unknown indication
     Route: 065

REACTIONS (5)
  - Muscle strain [Recovering/Resolving]
  - Hypertensive crisis [Recovering/Resolving]
  - Blood pressure increased [Unknown]
  - Psoriasis [Unknown]
  - Acne [Unknown]

NARRATIVE: CASE EVENT DATE: 20240101
